FAERS Safety Report 9588702 (Version 1)
Quarter: 2013Q4

REPORT INFORMATION
  Report Type: Spontaneous
  Country: US (occurrence: US)
  Receive Date: 20131003
  Receipt Date: 20131003
  Transmission Date: 20140711
  Serious: No
  Sender: FDA-Public Use
  Company Number: US-AMGEN-USASP2012065652

PATIENT
  Sex: Female
  Weight: 81.63 kg

DRUGS (9)
  1. ENBREL [Suspect]
     Indication: PSORIASIS
     Dosage: 50 MG, UNK
  2. ENBREL [Suspect]
     Indication: RHEUMATOID ARTHRITIS
  3. PREDNISONE [Concomitant]
     Dosage: 2.5 MG, UNK
  4. AVAPRO [Concomitant]
     Dosage: 75 MG, UNK
  5. METHYLDOPA [Concomitant]
     Dosage: 250 MG, UNK
  6. DILTIAZEM [Concomitant]
     Dosage: 240 MG, UNK
  7. MULTIVITAMINS, PLAIN [Concomitant]
     Dosage: UNK
  8. VITAMIN D                          /00107901/ [Concomitant]
     Dosage: 400 UNK, UNK
  9. ORENCIA [Concomitant]
     Dosage: UNK

REACTIONS (3)
  - Therapeutic response decreased [Unknown]
  - Joint effusion [Unknown]
  - Psoriasis [Unknown]
